FAERS Safety Report 23924480 (Version 4)
Quarter: 2024Q2

REPORT INFORMATION
  Report Type: Spontaneous
  Country: CN (occurrence: CN)
  Receive Date: 20240531
  Receipt Date: 20240618
  Transmission Date: 20240716
  Serious: Yes (Death)
  Sender: FDA-Public Use
  Company Number: CN-PFIZER INC-PV202400070696

PATIENT
  Age: 58 Year
  Sex: Male
  Weight: 56 kg

DRUGS (3)
  1. CYTARABINE [Suspect]
     Active Substance: CYTARABINE
     Indication: Acute leukaemia
     Dosage: D1-7 Q3W*1
     Route: 041
     Dates: start: 20240319
  2. DAUNORUBICIN HYDROCHLORIDE [Suspect]
     Active Substance: DAUNORUBICIN HYDROCHLORIDE
     Indication: Acute leukaemia
     Dosage: ONCE IN 11DAYS
     Route: 041
     Dates: start: 20240319, end: 20240321
  3. HYDROXYUREA [Concomitant]
     Active Substance: HYDROXYUREA
     Indication: Symptomatic treatment
     Dosage: TID
     Route: 048

REACTIONS (5)
  - Myelosuppression [Fatal]
  - Nausea [Fatal]
  - Vomiting [Fatal]
  - Pneumonia [Fatal]
  - Cardiac arrest [Fatal]

NARRATIVE: CASE EVENT DATE: 20240301
